FAERS Safety Report 19800046 (Version 31)
Quarter: 2025Q2

REPORT INFORMATION
  Report Type: Report from Study
  Country: CA (occurrence: CA)
  Receive Date: 20210907
  Receipt Date: 20250611
  Transmission Date: 20250716
  Serious: Yes (Other)
  Sender: BIOCON
  Company Number: CA-MYLANLABS-2021M1058479

PATIENT

DRUGS (20)
  1. HULIO [Suspect]
     Active Substance: ADALIMUMAB-FKJP
     Indication: Psoriatic arthropathy
     Dosage: 40 MILLIGRAM, Q2W ( EVERY OTHER WEEK)
     Route: 058
  2. HULIO [Suspect]
     Active Substance: ADALIMUMAB-FKJP
     Indication: Rheumatoid arthritis
     Route: 065
  3. HULIO [Suspect]
     Active Substance: ADALIMUMAB-FKJP
     Dosage: 40 MILLIGRAM, Q2W ( EVERY OTHER WEEK)
     Route: 058
  4. HULIO [Suspect]
     Active Substance: ADALIMUMAB-FKJP
     Route: 058
     Dates: start: 20210516
  5. HULIO [Suspect]
     Active Substance: ADALIMUMAB-FKJP
     Route: 065
  6. HULIO [Suspect]
     Active Substance: ADALIMUMAB-FKJP
     Dosage: 40 MILLIGRAM, Q2W (ONCE PER 2 WEEK)
     Route: 058
  7. HULIO [Suspect]
     Active Substance: ADALIMUMAB-FKJP
     Route: 058
     Dates: start: 20230802
  8. HULIO [Suspect]
     Active Substance: ADALIMUMAB-FKJP
     Route: 058
     Dates: start: 20210516
  9. HULIO [Suspect]
     Active Substance: ADALIMUMAB-FKJP
     Route: 058
  10. HULIO [Suspect]
     Active Substance: ADALIMUMAB-FKJP
     Route: 058
  11. HULIO [Suspect]
     Active Substance: ADALIMUMAB-FKJP
     Route: 065
  12. HULIO [Suspect]
     Active Substance: ADALIMUMAB-FKJP
     Route: 065
  13. HULIO [Suspect]
     Active Substance: ADALIMUMAB-FKJP
     Dosage: 40 MG, QWEEK
     Route: 065
     Dates: start: 20230720
  14. HULIO [Suspect]
     Active Substance: ADALIMUMAB-FKJP
     Route: 058
     Dates: start: 20210516
  15. HULIO [Suspect]
     Active Substance: ADALIMUMAB-FKJP
     Route: 058
  16. HULIO [Suspect]
     Active Substance: ADALIMUMAB-FKJP
     Route: 058
     Dates: start: 20210516
  17. HULIO [Suspect]
     Active Substance: ADALIMUMAB-FKJP
     Route: 058
  18. HULIO [Suspect]
     Active Substance: ADALIMUMAB-FKJP
     Route: 058
  19. TYLENOL [Concomitant]
     Active Substance: ACETAMINOPHEN
     Indication: Pain
     Route: 065
  20. DULOXETINE [Concomitant]
     Active Substance: DULOXETINE
     Indication: Pain
     Dosage: 30 MG, QD
     Route: 065
     Dates: start: 20231218

REACTIONS (29)
  - Vein rupture [Unknown]
  - Psoriatic arthropathy [Unknown]
  - Mobility decreased [Unknown]
  - Burning sensation [Not Recovered/Not Resolved]
  - Breast pain [Recovering/Resolving]
  - Pigmentation disorder [Unknown]
  - Skin reaction [Unknown]
  - Swelling [Recovering/Resolving]
  - Arthralgia [Unknown]
  - Pain [Not Recovered/Not Resolved]
  - Erythema [Unknown]
  - Hypoaesthesia [Unknown]
  - Peripheral swelling [Unknown]
  - Pain in extremity [Not Recovered/Not Resolved]
  - Musculoskeletal stiffness [Not Recovered/Not Resolved]
  - Contusion [Unknown]
  - Skin papilloma [Not Recovered/Not Resolved]
  - Psoriasis [Unknown]
  - Insomnia [Unknown]
  - Injection site mass [Unknown]
  - Injection site pain [Unknown]
  - Injection site bruising [Not Recovered/Not Resolved]
  - Nausea [Unknown]
  - Inappropriate schedule of product administration [Not Recovered/Not Resolved]
  - Product dose omission issue [Unknown]
  - Incorrect dose administered [Unknown]
  - Wrong technique in product usage process [Unknown]
  - Product administered at inappropriate site [Unknown]
  - Off label use [Unknown]

NARRATIVE: CASE EVENT DATE: 20210827
